FAERS Safety Report 20473893 (Version 1)
Quarter: 2022Q1

REPORT INFORMATION
  Report Type: Spontaneous
  Country: US (occurrence: US)
  Receive Date: 20220215
  Receipt Date: 20220215
  Transmission Date: 20220423
  Serious: Yes (Other)
  Sender: FDA-Public Use
  Company Number: US-MLMSERVICE-20220201-3348507-1

PATIENT
  Age: 79 Year
  Sex: Male

DRUGS (4)
  1. FLUOROURACIL [Suspect]
     Active Substance: FLUOROURACIL
     Indication: Prostate cancer stage III
     Dosage: 1000 MG/M2/DAY ON DAYS 1-4 AND 29-32
  2. MITOMYCIN [Suspect]
     Active Substance: MITOMYCIN
     Indication: Prostate cancer stage III
     Dosage: 10 MG/M2 ON DAYS 1 AND 29
  3. BICALUTAMIDE [Concomitant]
     Active Substance: BICALUTAMIDE
     Indication: Anal squamous cell carcinoma
  4. LEUPROLIDE ACETATE [Concomitant]
     Active Substance: LEUPROLIDE ACETATE
     Indication: Anal squamous cell carcinoma

REACTIONS (8)
  - Diarrhoea [Unknown]
  - Neutropenia [Unknown]
  - Pollakiuria [Unknown]
  - Weight decreased [Unknown]
  - Toxicity to various agents [Unknown]
  - Dehydration [Unknown]
  - Fatigue [Unknown]
  - Off label use [Unknown]
